FAERS Safety Report 9701748 (Version 1)
Quarter: 2013Q4

REPORT INFORMATION
  Report Type: Spontaneous
  Country: DE (occurrence: DE)
  Receive Date: 20131121
  Receipt Date: 20131121
  Transmission Date: 20140711
  Serious: Yes (Other)
  Sender: FDA-Public Use
  Company Number: DE-ACTAVIS-2013-21064

PATIENT
  Age: 37 Year
  Sex: Female

DRUGS (9)
  1. DOCETAXEL (UNKNOWN) [Suspect]
     Indication: ADENOCARCINOMA GASTRIC
     Dosage: UNK
     Route: 065
  2. DOCETAXEL (UNKNOWN) [Suspect]
     Indication: METASTASES TO OVARY
  3. CISPLATIN (UNKNOWN) [Suspect]
     Indication: ADENOCARCINOMA GASTRIC
     Dosage: UNK
     Route: 065
  4. CISPLATIN (UNKNOWN) [Suspect]
     Indication: METASTASES TO OVARY
  5. FLUOROURACIL [Suspect]
     Indication: ADENOCARCINOMA GASTRIC
     Dosage: UNK
     Route: 065
  6. FLUOROURACIL [Suspect]
     Indication: METASTASES TO OVARY
  7. BEVACIZUMAB [Suspect]
     Indication: ADENOCARCINOMA GASTRIC
     Dosage: UNK
     Route: 065
  8. BEVACIZUMAB [Suspect]
     Indication: METASTASES TO OVARY
  9. LEVOTHYROXINE [Concomitant]
     Indication: PRODUCT USED FOR UNKNOWN INDICATION
     Dosage: 75 MG, DAILY
     Route: 065

REACTIONS (9)
  - Weight decreased [Unknown]
  - Virilism [Unknown]
  - Hirsutism [Unknown]
  - Androgens increased [Unknown]
  - Progesterone increased [Unknown]
  - 17-hydroxyprogesterone increased [Unknown]
  - Decreased appetite [Unknown]
  - Nausea [Unknown]
  - Vomiting [Unknown]
